FAERS Safety Report 13707280 (Version 6)
Quarter: 2018Q3

REPORT INFORMATION
  Report Type: Spontaneous
  Country: US (occurrence: US)
  Receive Date: 20170630
  Receipt Date: 20180904
  Transmission Date: 20181010
  Serious: Yes (Other)
  Sender: FDA-Public Use
  Company Number: US-SA-2017SA114264

PATIENT
  Age: 50 Year
  Sex: Female
  Weight: 90.72 kg

DRUGS (9)
  1. FEMARA [Concomitant]
     Active Substance: LETROZOLE
     Dosage: UNK UNK,UNK
     Route: 065
     Dates: start: 201006
  2. TAXOTERE [Suspect]
     Active Substance: DOCETAXEL
     Indication: BREAST CANCER STAGE III
     Dosage: 100 MG/M2,Q3W
     Route: 042
     Dates: start: 20070730, end: 20070730
  3. NEOSAR [Concomitant]
     Active Substance: CYCLOPHOSPHAMIDE
     Dosage: UNK
     Route: 065
  4. DOXYCYCLINE HYDROCHLORIDE [Concomitant]
     Active Substance: DOXYCYCLINE HYDROCHLORIDE
     Dosage: UNK
     Route: 065
  5. TAMOXIFEN [Concomitant]
     Active Substance: TAMOXIFEN
     Dosage: UNK UNK,UNK
     Route: 065
     Dates: start: 200805, end: 200909
  6. ZOLADEX [GOSERELIN] [Concomitant]
     Dosage: UNK UNK,UNK
     Route: 065
     Dates: start: 201006
  7. ALOXI [Concomitant]
     Active Substance: PALONOSETRON HYDROCHLORIDE
     Dosage: UNK
     Route: 065
  8. TAXOTERE [Suspect]
     Active Substance: DOCETAXEL
     Dosage: 100 MG/M2,Q3W
     Route: 042
     Dates: start: 20071008, end: 20071008
  9. ADRIAMYCIN [Concomitant]
     Active Substance: DOXORUBICIN HYDROCHLORIDE
     Dosage: UNK
     Route: 065

REACTIONS (6)
  - Impaired quality of life [Unknown]
  - Emotional distress [Unknown]
  - Pain [Unknown]
  - Psychological trauma [Unknown]
  - Anxiety [Unknown]
  - Alopecia [Not Recovered/Not Resolved]

NARRATIVE: CASE EVENT DATE: 20080401
